FAERS Safety Report 7546211-8 (Version None)
Quarter: 2011Q2

REPORT INFORMATION
  Report Type: 
  Country: None (occurrence: None)
  Receive Date: 20110614
  Receipt Date: 20030811
  Transmission Date: 20111010
  Serious: Yes (Hospitalization, Other)
  Sender: FDA-Public Use
  Company Number: PHFR2003GB03155

PATIENT
  Sex: Male

DRUGS (1)
  1. CLOZAPINE [Suspect]
     Indication: SCHIZOPHRENIA
     Route: 048
     Dates: start: 20030728

REACTIONS (6)
  - PYREXIA [None]
  - SOMNOLENCE [None]
  - HEADACHE [None]
  - TACHYCARDIA [None]
  - TREMOR [None]
  - INFLUENZA LIKE ILLNESS [None]
